FAERS Safety Report 8515745-1 (Version None)
Quarter: 2012Q3

REPORT INFORMATION
  Report Type: 
  Country: None (occurrence: None)
  Receive Date: 20120717
  Receipt Date: 20120713
  Transmission Date: 20120928
  Serious: Yes (Other)
  Sender: FDA-Public Use
  Company Number: PHHO2011AU18302

PATIENT
  Sex: Male

DRUGS (5)
  1. AVAPRO [Concomitant]
     Dosage: UNK
     Dates: start: 20100420
  2. ADALAT [Concomitant]
     Dosage: UNK
     Dates: start: 20081027
  3. CELLCEPT [Suspect]
     Indication: RENAL TRANSPLANT
     Dosage: 2000 MG, QD
     Route: 048
     Dates: start: 20061128
  4. CYCLOSPORINE [Suspect]
     Indication: RENAL TRANSPLANT
     Dosage: 125 MG, QD
     Route: 048
     Dates: start: 20061127
  5. PREDNISONE [Suspect]
     Indication: RENAL TRANSPLANT
     Dosage: 5 MG, QD
     Route: 048
     Dates: start: 20061207

REACTIONS (2)
  - BASAL CELL CARCINOMA [None]
  - SQUAMOUS CELL CARCINOMA OF SKIN [None]
